FAERS Safety Report 5624161-1 (Version None)
Quarter: 2008Q1

REPORT INFORMATION
  Report Type: 
  Country: None (occurrence: None)
  Receive Date: 20080213
  Receipt Date: 20080208
  Transmission Date: 20080703
  Serious: Yes (Death, Hospitalization, Other)
  Sender: FDA-Public Use
  Company Number: PHHO2007NO19319

PATIENT
  Age: 56 Year
  Sex: Male
  Weight: 124 kg

DRUGS (11)
  1. CERTICAN [Suspect]
     Indication: HEART TRANSPLANT
     Dosage: 0.50 MG + 0.75 MG DAILY
     Route: 048
  2. CERTICAN [Suspect]
     Dosage: 0.75 MG, BID
     Route: 048
     Dates: start: 20070226
  3. NEORAL [Suspect]
     Indication: HEART TRANSPLANT
     Dosage: 25 MG + 50 MG
     Route: 048
     Dates: start: 20030902
  4. CELLCEPT [Concomitant]
     Indication: HEART TRANSPLANT
     Dosage: 1.5 MG, BID
     Route: 048
  5. PREDNISOLONE [Concomitant]
     Dosage: 10 MG, QD
     Route: 048
  6. PRAVACHOL [Concomitant]
     Dosage: 40 MG DAILY DOSE
  7. FURIX [Concomitant]
     Dosage: 40 MG, BID
     Route: 048
  8. TRIATEC [Concomitant]
     Dosage: 50 MG, BID
     Route: 048
  9. SELO-ZOK [Concomitant]
     Dosage: 50 MG DAILY
  10. ALLOPURINOL [Concomitant]
  11. NEXIUM [Concomitant]
     Dosage: 20 MG DAILY

REACTIONS (8)
  - BLOOD CREATININE INCREASED [None]
  - BLOOD POTASSIUM INCREASED [None]
  - BRADYCARDIA [None]
  - CARDIAC FAILURE [None]
  - DEEP VEIN THROMBOSIS [None]
  - PULMONARY EMBOLISM [None]
  - RENAL FAILURE [None]
  - RENAL IMPAIRMENT [None]
